FAERS Safety Report 25106152 (Version 3)
Quarter: 2025Q2

REPORT INFORMATION
  Report Type: Spontaneous
  Country: CO (occurrence: CO)
  Receive Date: 20250321
  Receipt Date: 20250512
  Transmission Date: 20250716
  Serious: No
  Sender: PFIZER
  Company Number: CO-PFIZER INC-PV202500029601

PATIENT
  Age: 15 Year
  Sex: Male

DRUGS (1)
  1. GENOTROPIN [Suspect]
     Active Substance: SOMATROPIN
     Dosage: 1.2 MG, DAILY

REACTIONS (1)
  - Device issue [Unknown]
